FAERS Safety Report 13404084 (Version 1)
Quarter: 2017Q2

REPORT INFORMATION
  Report Type: Spontaneous
  Country: US (occurrence: US)
  Receive Date: 20170405
  Receipt Date: 20170405
  Transmission Date: 20170830
  Serious: Yes (Other)
  Sender: FDA-Public Use
  Company Number: None

PATIENT
  Sex: Female
  Weight: 81.9 kg

DRUGS (15)
  1. DULOXETINE. [Concomitant]
     Active Substance: DULOXETINE
  2. D2 [Concomitant]
  3. MIRAPEX [Concomitant]
     Active Substance: PRAMIPEXOLE DIHYDROCHLORIDE
  4. BOTOX [Concomitant]
     Active Substance: ONABOTULINUMTOXINA
  5. LEXAPRO [Concomitant]
     Active Substance: ESCITALOPRAM OXALATE
  6. MIGRANAL [Concomitant]
     Active Substance: DIHYDROERGOTAMINE MESYLATE
  7. AMITRIPTYLINE [Concomitant]
     Active Substance: AMITRIPTYLINE
  8. IRON [Concomitant]
     Active Substance: IRON
  9. VALSARTAN. [Concomitant]
     Active Substance: VALSARTAN
  10. CLONAZEPAM. [Concomitant]
     Active Substance: CLONAZEPAM
  11. TRAMADOL. [Concomitant]
     Active Substance: TRAMADOL
  12. ZECUITY [Suspect]
     Active Substance: SUMATRIPTAN SUCCINATE
     Indication: MIGRAINE
     Route: 062
  13. MULTIVITAMIN [Concomitant]
     Active Substance: VITAMINS
  14. VITAMIN D3 [Concomitant]
     Active Substance: CHOLECALCIFEROL
  15. VITAMIN B12 [Concomitant]
     Active Substance: CYANOCOBALAMIN

REACTIONS (8)
  - Application site pruritus [None]
  - Application site warmth [None]
  - Application site swelling [None]
  - Application site erythema [None]
  - Application site burn [None]
  - Application site exfoliation [None]
  - Application site irritation [None]
  - Application site scar [None]
